FAERS Safety Report 6406937-6 (Version None)
Quarter: 2009Q4

REPORT INFORMATION
  Report Type: 
  Country: None (occurrence: None)
  Receive Date: 20091020
  Receipt Date: 20091009
  Transmission Date: 20100525
  Serious: Yes (Disabling)
  Sender: FDA-Public Use
  Company Number: GB-ASTRAZENECA-2009SE19466

PATIENT
  Age: 94 Year
  Sex: Female

DRUGS (2)
  1. TENORMIN [Suspect]
     Route: 065
     Dates: start: 20070101, end: 20090901
  2. CARVEDILOL [Suspect]
     Dates: start: 20090901

REACTIONS (1)
  - VISUAL ACUITY REDUCED [None]
